FAERS Safety Report 4828194-4 (Version None)
Quarter: 2005Q4

REPORT INFORMATION
  Report Type: 
  Country: None (occurrence: None)
  Receive Date: 20051115
  Receipt Date: 20051003
  Transmission Date: 20060501
  Serious: Yes (Hospitalization)
  Sender: FDA-Public Use
  Company Number: GB-GLAXOSMITHKLINE-B0396069A

PATIENT
  Age: 79 Year
  Sex: Female

DRUGS (3)
  1. SEREVENT [Suspect]
     Dates: start: 20050901, end: 20050901
  2. PREDNISOLONE [Concomitant]
     Dosage: 20MG PER DAY
     Route: 065
  3. SYMBICORT [Concomitant]
     Route: 065

REACTIONS (3)
  - PNEUMONIA [None]
  - RASH GENERALISED [None]
  - SKIN EXFOLIATION [None]
